FAERS Safety Report 20889429 (Version 5)
Quarter: 2022Q4

REPORT INFORMATION
  Report Type: Report from Study
  Country: CA (occurrence: CA)
  Receive Date: 20220530
  Receipt Date: 20221116
  Transmission Date: 20230112
  Serious: Yes (Life-Threatening, Hospitalization, Other)
  Sender: FDA-Public Use
  Company Number: CA-JNJFOC-20220558758

PATIENT
  Age: 64 Year
  Sex: Male

DRUGS (7)
  1. SIMPONI [Suspect]
     Active Substance: GOLIMUMAB
     Indication: Psoriatic arthropathy
     Route: 058
     Dates: start: 20170602
  2. METHOTREXATE [Concomitant]
     Active Substance: METHOTREXATE
  3. COVID-19 VACCINE [Concomitant]
     Indication: COVID-19 prophylaxis
     Dates: start: 202104
  4. COVID-19 VACCINE [Concomitant]
     Dates: start: 20210709
  5. COVID-19 VACCINE [Concomitant]
     Dates: start: 20211107
  6. COVID-19 VACCINE [Concomitant]
     Dates: start: 202203
  7. TYLENOL [Concomitant]
     Active Substance: ACETAMINOPHEN

REACTIONS (5)
  - Pneumonia [Recovering/Resolving]
  - Influenza [Not Recovered/Not Resolved]
  - Oesophageal infection [Not Recovered/Not Resolved]
  - COVID-19 [Recovering/Resolving]
  - Psoriatic arthropathy [Unknown]

NARRATIVE: CASE EVENT DATE: 20220513
